FAERS Safety Report 23213840 (Version 3)
Quarter: 2024Q2

REPORT INFORMATION
  Report Type: Spontaneous
  Country: US (occurrence: US)
  Receive Date: 20231121
  Receipt Date: 20240508
  Transmission Date: 20240716
  Serious: No
  Sender: FDA-Public Use
  Company Number: US-SA-SAC20231120000380

PATIENT
  Age: 66 Year
  Sex: Male

DRUGS (1)
  1. DUPIXENT [Suspect]
     Active Substance: DUPILUMAB
     Indication: Nasal polyps
     Dosage: 300 MG, QOW
     Route: 058
     Dates: start: 20231005

REACTIONS (8)
  - Nasal congestion [Unknown]
  - Nasal obstruction [Unknown]
  - Anosmia [Unknown]
  - Condition aggravated [Unknown]
  - Rhinorrhoea [Unknown]
  - Sinusitis [Unknown]
  - Eye pruritus [Unknown]
  - Upper-airway cough syndrome [Unknown]

NARRATIVE: CASE EVENT DATE: 20231101
